FAERS Safety Report 4995026-3 (Version None)
Quarter: 2006Q2

REPORT INFORMATION
  Report Type: 
  Country: None (occurrence: None)
  Receive Date: 20060503
  Receipt Date: 20060421
  Transmission Date: 20061013
  Serious: Yes (Death, Hospitalization, Other)
  Sender: FDA-Public Use
  Company Number: US_0501110500

PATIENT
  Age: 42 Year
  Sex: Male
  Weight: 108.8 kg

DRUGS (12)
  1. ZYPREXA [Suspect]
     Indication: SCHIZOAFFECTIVE DISORDER
     Dosage: SEE IMAGE, ORAL
     Route: 048
     Dates: start: 19990101, end: 20010101
  2. ZYPREXA [Suspect]
     Indication: SCHIZOAFFECTIVE DISORDER
     Dosage: SEE IMAGE, ORAL
     Route: 048
     Dates: start: 20010308
  3. PROZAC [Concomitant]
  4. CELEXA [Concomitant]
  5. ATIVAN [Concomitant]
  6. TRAZODONE HCL [Concomitant]
  7. IBUPROFEN [Concomitant]
  8. PAXIL [Concomitant]
  9. SERZONE [Concomitant]
  10. WELLBUTRIN [Concomitant]
  11. RISPERDAL [Concomitant]
  12. SEROQUEL [Concomitant]

REACTIONS (17)
  - CARDIO-RESPIRATORY ARREST [None]
  - DEEP VEIN THROMBOSIS [None]
  - DIABETES MELLITUS [None]
  - DIABETIC KETOACIDOSIS [None]
  - DRUG DEPENDENCE [None]
  - ELECTROLYTE IMBALANCE [None]
  - HALLUCINATION, VISUAL [None]
  - HEADACHE [None]
  - LACERATION [None]
  - OEDEMA [None]
  - OEDEMA PERIPHERAL [None]
  - POLYSUBSTANCE ABUSE [None]
  - SCHIZOAFFECTIVE DISORDER [None]
  - SCHIZOPHRENIA, PARANOID TYPE [None]
  - STRESS [None]
  - TOOTHACHE [None]
  - WEIGHT DECREASED [None]
